FAERS Safety Report 10442161 (Version 1)
Quarter: 2014Q3

REPORT INFORMATION
  Report Type: Spontaneous
  Country: US (occurrence: US)
  Receive Date: 20140909
  Receipt Date: 20140909
  Transmission Date: 20150326
  Serious: No
  Sender: FDA-Public Use
  Company Number: US-PFIZER INC-2014248993

PATIENT
  Age: 84 Year
  Sex: Female
  Weight: 60.31 kg

DRUGS (1)
  1. PREMARIN [Suspect]
     Active Substance: ESTROGENS, CONJUGATED
     Indication: VULVOVAGINAL DRYNESS
     Dosage: UNK (HALF AN APPLICATOR), 2X/WEEK
     Route: 067

REACTIONS (2)
  - Intentional product misuse [Unknown]
  - Blood potassium abnormal [Unknown]
